FAERS Safety Report 7951892-0 (Version None)
Quarter: 2011Q4

REPORT INFORMATION
  Report Type: 
  Country: None (occurrence: None)
  Receive Date: 20111201
  Receipt Date: 20111201
  Transmission Date: 20120403
  Serious: No
  Sender: FDA-Public Use
  Company Number: None

PATIENT
  Age: 50 Year
  Sex: Male
  Weight: 74.842 kg

DRUGS (1)
  1. NATURE MADE ^SLEEP^. [Suspect]

REACTIONS (1)
  - HAEMORRHOIDS [None]
